FAERS Safety Report 16214530 (Version 1)
Quarter: 2019Q2

REPORT INFORMATION
  Report Type: Spontaneous
  Country: US (occurrence: US)
  Receive Date: 20190418
  Receipt Date: 20190418
  Transmission Date: 20190711
  Serious: Yes (Other)
  Sender: FDA-Public Use
  Company Number: PHEH2019US015983

PATIENT
  Age: 50 Year
  Sex: Male

DRUGS (1)
  1. COSENTYX [Suspect]
     Active Substance: SECUKINUMAB
     Indication: PRODUCT USED FOR UNKNOWN INDICATION
     Dosage: 300 MG, QW (IN THE MUSCLES)
     Route: 030
     Dates: end: 20190320

REACTIONS (3)
  - Respiratory syncytial virus infection [Unknown]
  - Pneumonia [Unknown]
  - Incorrect route of product administration [Unknown]
